FAERS Safety Report 12351457 (Version 1)
Quarter: 2016Q2

REPORT INFORMATION
  Report Type: Spontaneous
  Country: US (occurrence: US)
  Receive Date: 20160510
  Receipt Date: 20160510
  Transmission Date: 20160815
  Serious: Yes (Other)
  Sender: FDA-Public Use
  Company Number: ADR-2015-01196

PATIENT
  Age: 72 Year
  Sex: Male

DRUGS (1)
  1. LIORESAL [Suspect]
     Active Substance: BACLOFEN
     Dosage: 449.8 MCG/DAY
     Route: 037
     Dates: start: 20140617

REACTIONS (3)
  - Secretion discharge [Recovered/Resolved]
  - Implant site infection [Unknown]
  - Medical device site discharge [Recovered/Resolved]

NARRATIVE: CASE EVENT DATE: 20150514
